FAERS Safety Report 7378781-7 (Version None)
Quarter: 2011Q1

REPORT INFORMATION
  Report Type: 
  Country: None (occurrence: None)
  Receive Date: 20110317
  Receipt Date: 20110303
  Transmission Date: 20110831
  Serious: Yes (Hospitalization)
  Sender: FDA-Public Use
  Company Number: 2009003785

PATIENT
  Age: 69 Year

DRUGS (3)
  1. ERLOTINIB (ERLOTINIB) (TABLET) (ERLOTINIB) [Suspect]
     Indication: NON-SMALL CELL LUNG CANCER
     Dosage: 150 MG, QD, ORAL
     Route: 048
     Dates: start: 20091008
  2. GEMCITABINE [Suspect]
     Indication: NON-SMALL CELL LUNG CANCER
     Dosage: 1200 MG/M2, 2X Q3W, INTRAVENOUS
     Route: 042
     Dates: start: 20091202
  3. CISPLATIN [Suspect]
     Indication: NON-SMALL CELL LUNG CANCER
     Dosage: 80 MG/M2, Q3W; INTRAVENOUS
     Route: 042
     Dates: start: 20091202

REACTIONS (6)
  - PULMONARY EMBOLISM [None]
  - HEART RATE INCREASED [None]
  - BLOOD CREATINE INCREASED [None]
  - WHITE BLOOD CELL COUNT INCREASED [None]
  - ADRENAL INSUFFICIENCY [None]
  - HYPONATRAEMIA [None]
